FAERS Safety Report 4394472-9 (Version None)
Quarter: 2004Q3

REPORT INFORMATION
  Report Type: 
  Country: None (occurrence: None)
  Receive Date: 20040712
  Receipt Date: 20040630
  Transmission Date: 20050211
  Serious: Yes (Hospitalization)
  Sender: FDA-Public Use
  Company Number: US-AMGEN-US082088

PATIENT
  Age: 53 Year
  Sex: Female

DRUGS (6)
  1. EPOGEN [Suspect]
     Indication: ANAEMIA OF MALIGNANT DISEASE
     Dates: start: 20040623
  2. ATENOLOL [Concomitant]
  3. NAVELBINE [Concomitant]
  4. CELEBREX [Concomitant]
  5. COUMADIN [Concomitant]
  6. THIAZIDE [Concomitant]

REACTIONS (3)
  - ABDOMINAL PAIN [None]
  - CHEST PAIN [None]
  - PYREXIA [None]
